FAERS Safety Report 7491738-0 (Version None)
Quarter: 2011Q2

REPORT INFORMATION
  Report Type: 
  Country: None (occurrence: None)
  Receive Date: 20110519
  Receipt Date: 20110513
  Transmission Date: 20111010
  Serious: Yes (Death, Other)
  Sender: FDA-Public Use
  Company Number: JP-PFIZER INC-2011099239

PATIENT
  Age: 57 Year
  Sex: Female
  Weight: 53.35 kg

DRUGS (13)
  1. LORAZEPAM [Suspect]
     Indication: DEPRESSION
     Dosage: 0.5 MG, 2X/DAY
     Route: 048
     Dates: start: 20110311
  2. ALDACTONE [Concomitant]
     Indication: HEPATIC FAILURE
     Dosage: 25 MG, 3X/DAY
     Route: 048
     Dates: start: 20110304, end: 20110404
  3. MONILAC [Concomitant]
     Indication: HEPATIC CIRRHOSIS
     Dosage: 10 MG, 3X/DAY
     Route: 048
     Dates: start: 20110304, end: 20110404
  4. PAXIL [Suspect]
     Indication: DEPRESSION
     Dosage: 10 MG, 1X/DAY
     Route: 048
     Dates: start: 20110311, end: 20110318
  5. LIVACT [Concomitant]
     Indication: HEPATIC CIRRHOSIS
     Dosage: 4.15 G, 3X/DAY
     Route: 048
     Dates: start: 20110304, end: 20110328
  6. BIOFERMIN [Concomitant]
     Indication: ENTEROCOLITIS
     Dosage: 1 G, 3X/DAY
     Route: 048
     Dates: start: 20110304, end: 20110404
  7. MEILAX [Suspect]
     Indication: DEPRESSION
     Dosage: 1 MG, 1X/DAY
     Route: 048
     Dates: start: 20110311, end: 20110318
  8. VANCOMYCIN [Concomitant]
     Indication: PSEUDOMEMBRANOUS COLITIS
     Dosage: 500 MG, 4X/DAY
     Route: 048
     Dates: start: 20110304, end: 20110306
  9. GLAKAY [Concomitant]
     Indication: VITAMIN K DEFICIENCY
     Dosage: 15 MG, 1X/DAY
     Route: 048
     Dates: start: 20110304, end: 20110321
  10. LASIX [Concomitant]
     Indication: HEPATIC FAILURE
     Dosage: 40 MG, 2X/DAY
     Route: 048
     Dates: start: 20110304, end: 20110404
  11. TRAZODONE HYDROCHLORIDE [Suspect]
     Indication: INSOMNIA
     Dosage: 25 MG, AS NEEDED
     Route: 048
     Dates: start: 20110311, end: 20110317
  12. LANSOPRAZOLE [Concomitant]
     Indication: GASTRIC ULCER
     Dosage: 15 MG, 1X/DAY
     Route: 048
     Dates: start: 20110304, end: 20110318
  13. URSO 250 [Concomitant]
     Indication: HEPATIC CIRRHOSIS
     Dosage: 300 MG, 3X/DAY
     Route: 048
     Dates: start: 20110304, end: 20110404

REACTIONS (4)
  - COMA [None]
  - HEPATIC FAILURE [None]
  - MULTI-ORGAN FAILURE [None]
  - ENCEPHALOPATHY [None]
